FAERS Safety Report 8541466-5 (Version None)
Quarter: 2012Q3

REPORT INFORMATION
  Report Type: 
  Country: None (occurrence: None)
  Receive Date: 20120726
  Receipt Date: 20120718
  Transmission Date: 20120928
  Serious: Yes (Hospitalization, Disabling, Other)
  Sender: FDA-Public Use
  Company Number: US-009507513-1203USA03333

PATIENT

DRUGS (6)
  1. FOSAMAX [Suspect]
     Indication: OSTEOPOROSIS
     Dosage: 70 MG, UNK
     Route: 048
     Dates: start: 20050101, end: 20100101
  2. SIMVASTATIN [Concomitant]
     Route: 048
     Dates: end: 20120201
  3. FOSAMAX [Suspect]
     Indication: OSTEOPENIA
  4. LEVOTHROID [Concomitant]
     Indication: THYROID DISORDER
     Route: 048
     Dates: start: 20020101, end: 20120201
  5. FOSAMAX [Suspect]
     Dosage: 70 MG, UNK
     Route: 048
     Dates: start: 20100101, end: 20110701
  6. FOSAMAX PLUS D [Suspect]
     Indication: OSTEOPENIA
     Dosage: UNK UNK, QW
     Route: 048

REACTIONS (19)
  - CATARACT [None]
  - HYPERLIPIDAEMIA [None]
  - FEMUR FRACTURE [None]
  - ANAEMIA POSTOPERATIVE [None]
  - RASH PRURITIC [None]
  - TOOTH DISORDER [None]
  - ONYCHOMYCOSIS [None]
  - OSTEOPOROSIS [None]
  - HAEMORRHOIDS [None]
  - STRESS FRACTURE [None]
  - ATRIAL FIBRILLATION [None]
  - MACULAR DEGENERATION [None]
  - FALL [None]
  - DENTAL NECROSIS [None]
  - TOOTH FRACTURE [None]
  - STAPHYLOCOCCAL INFECTION [None]
  - ADVERSE DRUG REACTION [None]
  - HYPERTENSION [None]
  - CELLULITIS [None]
